FAERS Safety Report 8151951-6 (Version None)
Quarter: 2012Q1

REPORT INFORMATION
  Report Type: 
  Country: None (occurrence: None)
  Receive Date: 20120221
  Receipt Date: 20120215
  Transmission Date: 20120608
  Serious: No
  Sender: FDA-Public Use
  Company Number: US-PFIZER INC-2012041807

PATIENT
  Sex: Female

DRUGS (3)
  1. LYRICA [Suspect]
     Dosage: 100 MG, 3X/DAY
     Route: 048
  2. IBUPROFEN [Suspect]
     Dosage: UNK
  3. ACETAMINOPHEN [Suspect]
     Dosage: UNK

REACTIONS (1)
  - PAIN [None]
